FAERS Safety Report 10338048 (Version 1)
Quarter: 2014Q3

REPORT INFORMATION
  Report Type: Spontaneous
  Country: US (occurrence: None)
  Receive Date: 20140723
  Receipt Date: 20140723
  Transmission Date: 20150326
  Serious: Yes (Death)
  Sender: FDA-Public Use
  Company Number: None

PATIENT
  Age: 82 Year
  Sex: Male
  Weight: 96.7 kg

DRUGS (2)
  1. ENOXAPARIN [Suspect]
     Active Substance: ENOXAPARIN
     Indication: SURGERY
     Route: 058
     Dates: start: 20140430, end: 20140509
  2. HEPARIN [Suspect]
     Active Substance: HEPARIN SODIUM
     Indication: DEEP VEIN THROMBOSIS
     Dosage: 30000 UNITS ONCE IV
     Route: 042
     Dates: start: 20140429, end: 20140429

REACTIONS (15)
  - Pneumonia pseudomonal [None]
  - Hypotension [None]
  - Anoxia [None]
  - Cardiac failure [None]
  - Pseudomonal sepsis [None]
  - Heparin-induced thrombocytopenia [None]
  - Ventricular fibrillation [None]
  - Ischaemic hepatitis [None]
  - Unresponsive to stimuli [None]
  - Encephalopathy [None]
  - Cardio-respiratory arrest [None]
  - Pleural effusion [None]
  - Thrombocytopenia [None]
  - Multi-organ failure [None]
  - Renal failure [None]

NARRATIVE: CASE EVENT DATE: 20140513
